FAERS Safety Report 11569441 (Version 2)
Quarter: 2016Q3

REPORT INFORMATION
  Report Type: Report from Study
  Country: US (occurrence: US)
  Receive Date: 20150929
  Receipt Date: 20160824
  Transmission Date: 20161109
  Serious: Yes (Hospitalization)
  Sender: FDA-Public Use
  Company Number: US-ROCHE-ITM201506IM017129

PATIENT
  Sex: Male
  Weight: 75.82 kg

DRUGS (9)
  1. SOTALOL. [Concomitant]
     Active Substance: SOTALOL
  2. COREG [Concomitant]
     Active Substance: CARVEDILOL
  3. ACETYLSALICYLIC ACID [Concomitant]
     Active Substance: ASPIRIN
  4. ESBRIET [Suspect]
     Active Substance: PIRFENIDONE
     Indication: IDIOPATHIC PULMONARY FIBROSIS
     Dosage: 27-FEB-2015
     Route: 048
     Dates: start: 20150205
  5. FISH OIL [Concomitant]
     Active Substance: FISH OIL
  6. XANAX [Concomitant]
     Active Substance: ALPRAZOLAM
  7. PLAVIX [Concomitant]
     Active Substance: CLOPIDOGREL BISULFATE
  8. FLUTICASONE [Concomitant]
     Active Substance: FLUTICASONE\FLUTICASONE PROPIONATE
  9. RANITIDINE. [Concomitant]
     Active Substance: RANITIDINE

REACTIONS (2)
  - Heart rate irregular [Unknown]
  - Drug ineffective [Unknown]
